FAERS Safety Report 9628359 (Version 2)
Quarter: 2013Q4

REPORT INFORMATION
  Report Type: Spontaneous
  Country: US (occurrence: US)
  Receive Date: 20131017
  Receipt Date: 20131111
  Transmission Date: 20140711
  Serious: Yes (Other)
  Sender: FDA-Public Use
  Company Number: US-ROCHE-1289595

PATIENT
  Sex: Male
  Weight: 95.34 kg

DRUGS (6)
  1. XOLAIR [Suspect]
     Indication: ASTHMA
     Route: 058
  2. FLOVENT [Concomitant]
     Indication: ASTHMA
     Dosage: 2 PUFFS
     Route: 048
  3. SEREVENT [Concomitant]
     Indication: ASTHMA
     Dosage: 1 PUFF
     Route: 048
  4. SINGULAIR [Concomitant]
     Indication: ASTHMA
     Route: 048
  5. ZYRTEC [Concomitant]
     Indication: HYPERSENSITIVITY
     Route: 048
  6. NASONEX [Concomitant]
     Indication: HYPERSENSITIVITY
     Dosage: 2 SPRAYS
     Route: 045

REACTIONS (1)
  - Multiple sclerosis [Not Recovered/Not Resolved]
